FAERS Safety Report 9440758 (Version 2)
Quarter: 2013Q3

REPORT INFORMATION
  Report Type: Spontaneous
  Country: CO (occurrence: CO)
  Receive Date: 20130805
  Receipt Date: 20130827
  Transmission Date: 20140515
  Serious: Yes (Other)
  Sender: FDA-Public Use
  Company Number: CO-JNJFOC-20130718572

PATIENT
  Age: 50 Year
  Sex: Female
  Weight: 77 kg

DRUGS (6)
  1. REMICADE [Suspect]
     Indication: RHEUMATOID ARTHRITIS
     Dosage: APPROXIMATELY PATIENT RECEIVED 17 INFLIXIMAB DOSES.
     Route: 042
  2. REMICADE [Suspect]
     Indication: RHEUMATOID ARTHRITIS
     Route: 042
     Dates: start: 20130729
  3. METHOTREXATE [Concomitant]
     Indication: RHEUMATOID ARTHRITIS
     Route: 065
  4. BETALOC ZOK [Concomitant]
     Indication: HYPERTENSION
     Route: 065
  5. EUTIROX [Concomitant]
     Indication: HYPOTHYROIDISM
     Route: 065
  6. COAPROVEL [Concomitant]
     Indication: HYPERTENSION
     Route: 065

REACTIONS (1)
  - Herpes virus infection [Recovered/Resolved]
